FAERS Safety Report 11394955 (Version 1)
Quarter: 2015Q3

REPORT INFORMATION
  Report Type: Spontaneous
  Country: HU (occurrence: HU)
  Receive Date: 20150819
  Receipt Date: 20150819
  Transmission Date: 20151125
  Serious: Yes (Other)
  Sender: FDA-Public Use
  Company Number: HU-WATSON-2015-17632

PATIENT
  Age: 49 Year
  Sex: Female

DRUGS (1)
  1. LEVOSERT [Suspect]
     Active Substance: LEVONORGESTREL
     Indication: MENORRHAGIA
     Dosage: UNK
     Route: 015
     Dates: start: 20150318, end: 20150607

REACTIONS (3)
  - Haemorrhage [Recovered/Resolved]
  - Metrorrhagia [Recovered/Resolved]
  - Device expulsion [Recovered/Resolved]

NARRATIVE: CASE EVENT DATE: 201504
